FAERS Safety Report 24298127 (Version 5)
Quarter: 2025Q2

REPORT INFORMATION
  Report Type: Spontaneous
  Country: GB (occurrence: GB)
  Receive Date: 20240909
  Receipt Date: 20250422
  Transmission Date: 20250716
  Serious: Yes (Other)
  Sender: MYLAN
  Company Number: GB-MYLANLABS-2024M1081541

PATIENT
  Age: 35 Year
  Sex: Female

DRUGS (4)
  1. CLOZARIL [Suspect]
     Active Substance: CLOZAPINE
     Indication: Schizophrenia
     Dates: start: 20210916, end: 20240831
  2. CLOZARIL [Suspect]
     Active Substance: CLOZAPINE
     Dates: start: 20240903, end: 20241116
  3. CLOZARIL [Suspect]
     Active Substance: CLOZAPINE
  4. CLOZARIL [Suspect]
     Active Substance: CLOZAPINE

REACTIONS (3)
  - Autism spectrum disorder [Unknown]
  - Treatment noncompliance [Unknown]
  - Therapy interrupted [Unknown]

NARRATIVE: CASE EVENT DATE: 20250131
